FAERS Safety Report 4688965-4 (Version None)
Quarter: 2005Q2

REPORT INFORMATION
  Report Type: 
  Country: None (occurrence: None)
  Receive Date: 20050613
  Receipt Date: 20050310
  Transmission Date: 20051028
  Serious: Yes (Hospitalization, Other)
  Sender: FDA-Public Use
  Company Number: US-MERCK-0503USA02222

PATIENT
  Age: 51 Year
  Sex: Male
  Weight: 138 kg

DRUGS (24)
  1. SIMVASTATIN [Concomitant]
     Indication: BLOOD CHOLESTEROL INCREASED
     Route: 065
  2. RISPERIDONE [Concomitant]
     Indication: POST-TRAUMATIC STRESS DISORDER
     Route: 065
  3. TRAZODONE HYDROCHLORIDE [Concomitant]
     Route: 065
  4. TESTRED [Concomitant]
     Indication: PROSTATE CANCER
     Route: 065
  5. NEURONTIN [Concomitant]
     Route: 065
  6. KLONOPIN [Concomitant]
     Route: 065
  7. QUETIAPINE FUMARATE [Concomitant]
     Route: 065
  8. MEVACOR [Concomitant]
     Route: 048
  9. IMDUR [Concomitant]
     Route: 065
  10. ACIPHEX [Concomitant]
     Route: 065
  11. VIOXX [Suspect]
     Indication: BENIGN NEOPLASM
     Route: 048
     Dates: start: 19980601, end: 20040901
  12. VIOXX [Suspect]
     Route: 048
     Dates: start: 19980601, end: 20040901
  13. VIOXX [Suspect]
     Indication: SPONDYLITIS
     Route: 048
     Dates: start: 19980601, end: 20040901
  14. VIOXX [Suspect]
     Route: 048
     Dates: start: 19980601, end: 20040901
  15. CELEBREX [Concomitant]
     Route: 065
  16. TYLENOL W/ CODEINE NO. 3 [Concomitant]
     Route: 065
  17. NAPROXEN [Concomitant]
     Route: 065
  18. MAXZIDE [Concomitant]
     Indication: HYPERTENSION
     Route: 065
  19. LASIX [Concomitant]
     Route: 065
  20. LISINOPRIL [Concomitant]
     Indication: HYPERTENSION
     Route: 065
  21. LISINOPRIL [Concomitant]
     Route: 065
  22. PRILOSEC [Concomitant]
     Indication: GASTROOESOPHAGEAL REFLUX DISEASE
     Route: 065
  23. ZYRTEC [Concomitant]
     Route: 065
  24. CELEXA [Concomitant]
     Route: 065

REACTIONS (18)
  - ACUTE MYOCARDIAL INFARCTION [None]
  - CARDIAC FAILURE CONGESTIVE [None]
  - CARPAL TUNNEL SYNDROME [None]
  - CHEST PAIN [None]
  - CHRONIC OBSTRUCTIVE PULMONARY DISEASE [None]
  - CORONARY ARTERY DISEASE [None]
  - DIZZINESS [None]
  - DYSPNOEA [None]
  - DYSPNOEA PAROXYSMAL NOCTURNAL [None]
  - EMOTIONAL DISTRESS [None]
  - LIMB DISCOMFORT [None]
  - ORTHOPNOEA [None]
  - OSTEOPENIA [None]
  - PNEUMONIA [None]
  - PROSTATE CANCER RECURRENT [None]
  - SLEEP APNOEA SYNDROME [None]
  - SWELLING [None]
  - WEIGHT INCREASED [None]
